FAERS Safety Report 12212979 (Version 1)
Quarter: 2016Q1

REPORT INFORMATION
  Report Type: Spontaneous
  Country: US (occurrence: None)
  Receive Date: 20160325
  Receipt Date: 20160325
  Transmission Date: 20160526
  Serious: Yes (Death, Life-Threatening, Hospitalization, Other)
  Sender: FDA-Public Use
  Company Number: None

PATIENT
  Age: 70 Year
  Sex: Male
  Weight: 90.72 kg

DRUGS (3)
  1. VITAMIN C [Concomitant]
     Active Substance: ASCORBIC ACID
  2. MEVACOR [Suspect]
     Active Substance: LOVASTATIN
  3. LIPITOR [Suspect]
     Active Substance: ATORVASTATIN CALCIUM
     Indication: BLOOD CHOLESTEROL
     Route: 048
     Dates: start: 2000, end: 2007

REACTIONS (14)
  - Dyspnoea [None]
  - Paraesthesia [None]
  - Depression [None]
  - Myalgia [None]
  - Asthenia [None]
  - Abasia [None]
  - Muscle twitching [None]
  - Muscular weakness [None]
  - Bedridden [None]
  - Tremor [None]
  - Burning sensation [None]
  - Nervous system disorder [None]
  - Dizziness [None]
  - Activities of daily living impaired [None]

NARRATIVE: CASE EVENT DATE: 2007
